FAERS Safety Report 9373187 (Version 1)
Quarter: 2013Q2

REPORT INFORMATION
  Report Type: Spontaneous
  Country: US (occurrence: US)
  Receive Date: 20130627
  Receipt Date: 20130627
  Transmission Date: 20140414
  Serious: Yes (Death)
  Sender: FDA-Public Use
  Company Number: US-ROXANE LABORATORIES, INC.-2013-RO-01040RO

PATIENT
  Sex: Female

DRUGS (3)
  1. PREDNISONE [Suspect]
     Indication: HEART TRANSPLANT
  2. CELLCEPT [Suspect]
     Indication: HEART TRANSPLANT
  3. PROGRAF [Suspect]
     Indication: HEART TRANSPLANT

REACTIONS (1)
  - Death [Fatal]
